FAERS Safety Report 19647615 (Version 1)
Quarter: 2021Q3

REPORT INFORMATION
  Report Type: Spontaneous
  Country: US (occurrence: US)
  Receive Date: 20210802
  Receipt Date: 20210802
  Transmission Date: 20211014
  Serious: Yes (Death)
  Sender: FDA-Public Use
  Company Number: US-ENDO PHARMACEUTICALS INC-2021-010542

PATIENT
  Age: 6 Decade
  Sex: Female

DRUGS (1)
  1. KETALAR [Suspect]
     Active Substance: KETAMINE HYDROCHLORIDE
     Indication: AGGRESSION
     Dosage: 250 MG, SINGLE
     Route: 030

REACTIONS (3)
  - Cardiac arrest [Fatal]
  - Off label use [Recovered/Resolved]
  - Death [Fatal]
